FAERS Safety Report 5295517-4 (Version None)
Quarter: 2007Q2

REPORT INFORMATION
  Report Type: 
  Country: None (occurrence: None)
  Receive Date: 20070406
  Receipt Date: 20070330
  Transmission Date: 20071010
  Serious: Yes (Death)
  Sender: FDA-Public Use
  Company Number: FABR-11945

PATIENT
  Age: 52 Year
  Sex: Male

DRUGS (1)
  1. FABRAZYME [Suspect]
     Indication: FABRY'S DISEASE
     Dosage: 1 MG/KG Q2WKS IV
     Route: 042
     Dates: start: 20030101, end: 20061128

REACTIONS (3)
  - MULTI-ORGAN FAILURE [None]
  - PELVIC FRACTURE [None]
  - WOUND INFECTION [None]
